FAERS Safety Report 7815948-5 (Version None)
Quarter: 2011Q4

REPORT INFORMATION
  Report Type: 
  Country: None (occurrence: None)
  Receive Date: 20111014
  Receipt Date: 20110923
  Transmission Date: 20120403
  Serious: Yes (Other)
  Sender: FDA-Public Use
  Company Number: DE-ROCHE-1001438

PATIENT
  Age: 55 Year
  Sex: Male

DRUGS (4)
  1. ENOXAPARIN [Suspect]
     Indication: ACUTE MYOCARDIAL INFARCTION
  2. MORPHINE [Concomitant]
     Indication: CHEST PAIN
  3. TENECTEPLASE [Suspect]
     Indication: ACUTE MYOCARDIAL INFARCTION
  4. ASPIRIN [Suspect]
     Indication: ACUTE MYOCARDIAL INFARCTION

REACTIONS (6)
  - VENTRICULAR EXTRASYSTOLES [None]
  - GINGIVAL BLEEDING [None]
  - ELECTROCARDIOGRAM ST SEGMENT ELEVATION [None]
  - HAEMOGLOBIN DECREASED [None]
  - MELAENA [None]
  - INTESTINAL POLYP HAEMORRHAGE [None]
